FAERS Safety Report 10284047 (Version 2)
Quarter: 2014Q3

REPORT INFORMATION
  Report Type: Report from Study
  Country: PH (occurrence: PH)
  Receive Date: 20140708
  Receipt Date: 20140718
  Transmission Date: 20150326
  Serious: Yes (Other)
  Sender: FDA-Public Use
  Company Number: PH-OTSUKA-JP-2014-14961

PATIENT
  Age: 21 Year
  Sex: Male
  Weight: 55 kg

DRUGS (1)
  1. SAMSCA [Suspect]
     Active Substance: TOLVAPTAN
     Indication: PRODUCT USED FOR UNKNOWN INDICATION
     Dosage: 15 MG MILLIGRAM(S), DAILY DOSE
     Route: 048
     Dates: start: 20140605, end: 20140607

REACTIONS (3)
  - Rapid correction of hyponatraemia [Unknown]
  - Convulsion [Recovered/Resolved with Sequelae]
  - Hypernatraemia [Unknown]

NARRATIVE: CASE EVENT DATE: 20140608
